FAERS Safety Report 9446834 (Version 2)
Quarter: 2013Q3

REPORT INFORMATION
  Report Type: Spontaneous
  Country: US (occurrence: US)
  Receive Date: 20130807
  Receipt Date: 20130910
  Transmission Date: 20140515
  Serious: Yes (Life-Threatening, Hospitalization, Other)
  Sender: FDA-Public Use
  Company Number: US-RB-056919-13

PATIENT
  Age: 52 Year
  Sex: Female

DRUGS (4)
  1. SUBOXONE FILM [Suspect]
     Dosage: SUBOXONE FILM; VARIOUS DOSES FROM 12 MG TO 4 MG DAILY
     Route: 060
     Dates: start: 2011, end: 201305
  2. SUBOXONE FILM [Suspect]
     Indication: DRUG DEPENDENCE
     Dosage: SUBOXONE FILM
     Route: 060
     Dates: start: 201306
  3. ZOLOFT [Concomitant]
     Indication: DEPRESSION
     Dosage: DOSING DETAILS UNKNOWN
     Route: 048
  4. NEURONTIN [Concomitant]
     Indication: NEUROPATHY PERIPHERAL
     Route: 048

REACTIONS (4)
  - Pneumonia [Not Recovered/Not Resolved]
  - Lung neoplasm malignant [Not Recovered/Not Resolved]
  - Substance abuse [Not Recovered/Not Resolved]
  - Wrong technique in drug usage process [Not Recovered/Not Resolved]
